FAERS Safety Report 4398743-1 (Version None)
Quarter: 2004Q3

REPORT INFORMATION
  Report Type: 
  Country: None (occurrence: None)
  Receive Date: 20040712
  Receipt Date: 20040622
  Transmission Date: 20050211
  Serious: Yes (Life-Threatening, Hospitalization)
  Sender: FDA-Public Use
  Company Number: EWC040639750

PATIENT
  Age: 42 Year
  Sex: Male

DRUGS (6)
  1. OLANZAPINE [Suspect]
     Indication: MANIA
     Dosage: 10 MG DAY
     Dates: start: 20040406, end: 20040408
  2. CLOZAPINE [Concomitant]
  3. OXCARBAZEPINE [Concomitant]
  4. ZUCLOPENTHIXOL [Concomitant]
  5. BIPIRIDEN [Concomitant]
  6. CAMCOLIT (LITHIUM CARBONATE) [Concomitant]

REACTIONS (2)
  - AGRANULOCYTOSIS [None]
  - PYREXIA [None]
